FAERS Safety Report 20819419 (Version 1)
Quarter: 2022Q2

REPORT INFORMATION
  Report Type: Spontaneous
  Country: US (occurrence: None)
  Receive Date: 20220511
  Receipt Date: 20220511
  Transmission Date: 20220721
  Serious: No
  Sender: FDA-Public Use
  Company Number: None

PATIENT
  Age: 47 Year
  Sex: Female
  Weight: 105.75 kg

DRUGS (1)
  1. SUMATRIPTAN [Suspect]
     Active Substance: SUMATRIPTAN
     Indication: Migraine
     Dosage: OTHER QUANTITY : 1 TABLET(S);?
     Route: 048

REACTIONS (6)
  - Dysphagia [None]
  - Dizziness [None]
  - Palpitations [None]
  - Somnolence [None]
  - Fatigue [None]
  - Abdominal discomfort [None]

NARRATIVE: CASE EVENT DATE: 20220506
